FAERS Safety Report 6866080-9 (Version None)
Quarter: 2010Q3

REPORT INFORMATION
  Report Type: 
  Country: None (occurrence: None)
  Receive Date: 20100722
  Receipt Date: 20100709
  Transmission Date: 20110219
  Serious: Yes (Other)
  Sender: FDA-Public Use
  Company Number: PHHY2010MX41736

PATIENT
  Age: 75 Year
  Sex: Female
  Weight: 54 kg

DRUGS (5)
  1. ACLASTA [Suspect]
     Indication: OSTEOPOROSIS
     Dosage: 5MG/100ML PER YEAR
     Route: 042
     Dates: start: 20090701
  2. DIGOXIN [Concomitant]
     Indication: ARRHYTHMIA
     Dosage: 0.5 DF, 3 TIMES EACH WEEK
  3. LEVOTHYROXINE SODIUM [Concomitant]
     Indication: THYROID DISORDER
     Dosage: 1 TABLET PER DAY
  4. SUPRA LEODIN [Concomitant]
     Indication: GASTRITIS
     Dosage: 3 TABLET PER DAY
  5. ESPAVEN [Concomitant]
     Indication: GASTRITIS
     Dosage: 3 TABLET PER DAY

REACTIONS (3)
  - BRONCHITIS [None]
  - PAIN [None]
  - PYREXIA [None]
